FAERS Safety Report 18851883 (Version 1)
Quarter: 2021Q1

REPORT INFORMATION
  Report Type: Spontaneous
  Country: US (occurrence: US)
  Receive Date: 20210204
  Receipt Date: 20210204
  Transmission Date: 20210420
  Serious: Yes (Life-Threatening, Other)
  Sender: FDA-Public Use
  Company Number: None

PATIENT
  Age: 40 Year
  Sex: Male
  Weight: 85.5 kg

DRUGS (2)
  1. INVEGA TRINZA [Suspect]
     Active Substance: PALIPERIDONE PALMITATE
  2. MODERNA COVID?19 VACCINE [Suspect]
     Active Substance: CX-024414
     Route: 030

REACTIONS (6)
  - Myalgia [None]
  - Feeling abnormal [None]
  - Suicidal ideation [None]
  - Psychotic disorder [None]
  - Eye pain [None]
  - Chills [None]

NARRATIVE: CASE EVENT DATE: 20210122
